FAERS Safety Report 23227195 (Version 1)
Quarter: 2023Q4

REPORT INFORMATION
  Report Type: Spontaneous
  Country: CA (occurrence: CA)
  Receive Date: 20231124
  Receipt Date: 20231124
  Transmission Date: 20240110
  Serious: Yes (Other)
  Sender: FDA-Public Use
  Company Number: CA-TAKEDA-2023TUS114038

PATIENT
  Age: 35 Year
  Sex: Male

DRUGS (3)
  1. HUMAN IMMUNOGLOBULIN G [Suspect]
     Active Substance: HUMAN IMMUNOGLOBULIN G
     Indication: Product used for unknown indication
     Dosage: 20 GRAM
     Route: 065
  2. GAMUNEX [Suspect]
     Active Substance: HUMAN IMMUNOGLOBULIN G
     Indication: Product used for unknown indication
     Dosage: 5 GRAM
     Route: 065
  3. GAMUNEX [Suspect]
     Active Substance: HUMAN IMMUNOGLOBULIN G
     Dosage: 10 GRAM
     Route: 065

REACTIONS (5)
  - Blood bilirubin increased [Unknown]
  - Blood lactate dehydrogenase increased [Unknown]
  - Coombs direct test positive [Unknown]
  - Delayed haemolytic transfusion reaction [Unknown]
  - Haemoglobin decreased [Unknown]
